FAERS Safety Report 5445690-X (Version None)
Quarter: 2007Q3

REPORT INFORMATION
  Report Type: 
  Country: None (occurrence: None)
  Receive Date: 20070904
  Receipt Date: 20070821
  Transmission Date: 20080115
  Serious: Yes (Hospitalization)
  Sender: FDA-Public Use
  Company Number: 13883848

PATIENT
  Age: 35 Year
  Sex: Male

DRUGS (2)
  1. EMSAM [Suspect]
     Dosage: 6 MILLIGRAM, TD
     Route: 062
  2. ABILIFY [Concomitant]

REACTIONS (3)
  - CERVICAL VERTEBRAL FRACTURE [None]
  - CONVULSION [None]
  - FALL [None]
